FAERS Safety Report 4520738-5 (Version None)
Quarter: 2004Q4

REPORT INFORMATION
  Report Type: 
  Country: None (occurrence: None)
  Receive Date: 20041207
  Receipt Date: 20041130
  Transmission Date: 20050328
  Serious: Yes (Death, Hospitalization)
  Sender: FDA-Public Use
  Company Number: FR-MERCK-0412USA00179

PATIENT
  Age: 87 Year
  Sex: Female

DRUGS (5)
  1. MODURETIC 5-50 [Suspect]
     Indication: HYPERTENSION
     Route: 048
     Dates: end: 20040816
  2. NOCTRAN [Concomitant]
     Route: 065
     Dates: end: 20040816
  3. PREVISCAN [Concomitant]
     Route: 065
  4. CANDESARTAN CILEXETIL [Concomitant]
     Route: 065
     Dates: end: 20040816
  5. SINGULAIR [Concomitant]
     Route: 065
     Dates: end: 20040816

REACTIONS (4)
  - HYPERKALAEMIA [None]
  - HYPONATRAEMIA [None]
  - RENAL FAILURE [None]
  - RESPIRATORY DISTRESS [None]
